FAERS Safety Report 4625596-6 (Version None)
Quarter: 2005Q1

REPORT INFORMATION
  Report Type: 
  Country: None (occurrence: None)
  Receive Date: 20050331
  Receipt Date: 20050331
  Transmission Date: 20050727
  Serious: Yes (Other)
  Sender: FDA-Public Use
  Company Number: None

PATIENT
  Age: 56 Year
  Sex: Male

DRUGS (3)
  1. KETOCONAZOLE [Suspect]
     Indication: DRY SKIN
     Dosage: AS DIRECTED
     Dates: start: 20040901
  2. KETOCONAZOLE [Suspect]
     Indication: PRURITUS
     Dosage: AS DIRECTED
     Dates: start: 20040901
  3. KETOCONAZOLE [Suspect]
     Indication: SKIN EXFOLIATION
     Dosage: AS DIRECTED
     Dates: start: 20040901

REACTIONS (6)
  - DRUG INEFFECTIVE [None]
  - PHARMACEUTICAL PRODUCT COMPLAINT [None]
  - PRURITUS [None]
  - SKIN EXFOLIATION [None]
  - SKIN HAEMORRHAGE [None]
  - TREATMENT NONCOMPLIANCE [None]
